FAERS Safety Report 10133506 (Version 1)
Quarter: 2014Q2

REPORT INFORMATION
  Report Type: Spontaneous
  Country: US (occurrence: US)
  Receive Date: 20140428
  Receipt Date: 20140428
  Transmission Date: 20141212
  Serious: Yes (Other)
  Sender: FDA-Public Use
  Company Number: US-TEVA-477941USA

PATIENT
  Age: 31 Year
  Sex: Female
  Weight: 63.56 kg

DRUGS (1)
  1. PARAGARD 380A [Suspect]
     Indication: POST COITAL CONTRACEPTION
     Route: 015
     Dates: start: 201308

REACTIONS (4)
  - Device dislocation [Not Recovered/Not Resolved]
  - Coital bleeding [Recovered/Resolved]
  - Pelvic pain [Recovered/Resolved]
  - Discomfort [Recovered/Resolved]
